FAERS Safety Report 4410587-0 (Version None)
Quarter: 2004Q3

REPORT INFORMATION
  Report Type: 
  Country: None (occurrence: None)
  Receive Date: 20040726
  Receipt Date: 20040714
  Transmission Date: 20050211
  Serious: Yes (Other)
  Sender: FDA-Public Use
  Company Number: US-JNJFOC-20040704246

PATIENT
  Age: 55 Year
  Sex: Male

DRUGS (7)
  1. TOPAMAX [Suspect]
     Indication: ABNORMAL BEHAVIOUR
     Dosage: 50 MG, 2 IN 1 DAY ORAL
     Route: 048
     Dates: start: 20040703
  2. HALOPERIDOL [Concomitant]
  3. CLONIDINE [Concomitant]
  4. COGENTIN [Concomitant]
  5. LISINOPRIL [Concomitant]
  6. PROPRANOLOL LA (PROPRANOLOL) [Concomitant]
  7. CLONAZEPAM [Concomitant]

REACTIONS (3)
  - AMMONIA INCREASED [None]
  - BALANCE DISORDER [None]
  - FALL [None]
